FAERS Safety Report 21156299 (Version 2)
Quarter: 2023Q4

REPORT INFORMATION
  Report Type: Spontaneous
  Country: CN (occurrence: CN)
  Receive Date: 20220801
  Receipt Date: 20231006
  Transmission Date: 20240110
  Serious: Yes (Life-Threatening)
  Sender: FDA-Public Use
  Company Number: CN-BAYER-2022A107307

PATIENT
  Age: 66 Year
  Sex: Male

DRUGS (1)
  1. ULTRAVIST [Suspect]
     Active Substance: IOPROMIDE
     Indication: Computerised tomogram abdomen
     Dosage: 100 ML, ONCE
     Route: 041
     Dates: start: 20220707, end: 20220707

REACTIONS (7)
  - Blood pressure immeasurable [Recovered/Resolved]
  - Tremor [Recovered/Resolved]
  - Abdominal pain upper [Recovered/Resolved]
  - Vomiting [Recovered/Resolved]
  - Feeling cold [Recovered/Resolved]
  - Heart rate increased [Recovered/Resolved]
  - Incorrect drug administration rate [None]

NARRATIVE: CASE EVENT DATE: 20220707
